FAERS Safety Report 24437982 (Version 1)
Quarter: 2024Q4

REPORT INFORMATION
  Report Type: Spontaneous
  Country: GB (occurrence: GB)
  Receive Date: 20241015
  Receipt Date: 20241015
  Transmission Date: 20250115
  Serious: Yes (Life-Threatening, Other)
  Sender: SAMSUNG BIOEPIS
  Company Number: None

PATIENT
  Age: 68 Year
  Sex: Male

DRUGS (1)
  1. INFLIXIMAB [Suspect]
     Active Substance: INFLIXIMAB
     Indication: Crohn^s disease
     Dosage: 120 MG;
     Dates: start: 20221003

REACTIONS (2)
  - Seizure [Recovered/Resolved with Sequelae]
  - Spinal fracture [Unknown]

NARRATIVE: CASE EVENT DATE: 20240819
